FAERS Safety Report 9433468 (Version 1)
Quarter: 2013Q3

REPORT INFORMATION
  Report Type: Spontaneous
  Country: TR (occurrence: TR)
  Receive Date: 20130731
  Receipt Date: 20130731
  Transmission Date: 20140515
  Serious: Yes (Life-Threatening, Hospitalization, Other)
  Sender: FDA-Public Use
  Company Number: TR-ROXANE LABORATORIES, INC.-2013-RO-01243RO

PATIENT
  Age: 71 Year
  Sex: Female

DRUGS (4)
  1. METHOTREXATE [Suspect]
     Indication: RHEUMATOID ARTHRITIS
     Dosage: 2.5 MG
  2. METHOTREXATE [Suspect]
     Dosage: 2.5 MG
  3. CLOPIDOGREL [Suspect]
     Indication: CEREBRAL ISCHAEMIA
     Dosage: 75 MG
  4. DICLOFENAC [Suspect]
     Indication: CEREBRAL ISCHAEMIA
     Dosage: 100 MG

REACTIONS (10)
  - Pancytopenia [Recovered/Resolved]
  - Diarrhoea [Unknown]
  - Dehydration [Unknown]
  - Stomatitis [Unknown]
  - Oral candidiasis [Unknown]
  - Urinary tract infection [Unknown]
  - Hypoalbuminaemia [Recovered/Resolved]
  - Renal impairment [Unknown]
  - Mean cell volume increased [Recovered/Resolved]
  - Bone marrow eosinophilic leukocyte count increased [Recovered/Resolved]
